FAERS Safety Report 7204615-7 (Version None)
Quarter: 2010Q4

REPORT INFORMATION
  Report Type: 
  Country: None (occurrence: None)
  Receive Date: 20101230
  Receipt Date: 20101221
  Transmission Date: 20110411
  Serious: Yes (Other)
  Sender: FDA-Public Use
  Company Number: CA-MERCK-1012USA03898

PATIENT
  Age: 62 Year
  Sex: Female

DRUGS (5)
  1. ZETIA [Suspect]
     Route: 048
  2. SYNTHROID [Concomitant]
     Route: 065
  3. AMILORIDE HYDROCHLORIDE AND HYDROCHLOROTHIAZIDE [Concomitant]
     Route: 065
  4. ZOCOR [Concomitant]
     Route: 048
  5. CLOPIDOGREL BESYLATE [Concomitant]
     Route: 065

REACTIONS (4)
  - ANAPHYLACTIC REACTION [None]
  - CONVULSION [None]
  - POST PROCEDURAL HAEMORRHAGE [None]
  - VISUAL IMPAIRMENT [None]
